FAERS Safety Report 5567132-6 (Version None)
Quarter: 2007Q4

REPORT INFORMATION
  Report Type: 
  Country: None (occurrence: None)
  Receive Date: 20071219
  Receipt Date: 20071213
  Transmission Date: 20080405
  Serious: Yes (Hospitalization, Disabling)
  Sender: FDA-Public Use
  Company Number: US-GILEAD-2007-0014602

PATIENT
  Sex: Female
  Weight: 77.18 kg

DRUGS (17)
  1. LETAIRIS [Suspect]
     Indication: PULMONARY HYPERTENSION
     Route: 048
     Dates: start: 20071018, end: 20071107
  2. TAMOXIFEN CITRATE [Concomitant]
  3. COREG [Concomitant]
     Route: 048
  4. HYDRALAZINE [Concomitant]
     Route: 048
  5. ISOSORBIDE MONONITRATE [Concomitant]
     Route: 048
  6. ZOCOR [Concomitant]
  7. SINGULAIR [Concomitant]
     Route: 048
  8. ADVAIR DISKUS 100/50 [Concomitant]
  9. GLIPIZIDE [Concomitant]
     Route: 048
  10. AVANDIA [Concomitant]
     Route: 048
  11. ASPIRIN [Concomitant]
     Route: 048
  12. FOSAMAX [Concomitant]
     Route: 048
  13. FERROUS SULFATE TAB [Concomitant]
  14. OXYCODONE HCL [Concomitant]
     Route: 048
  15. ALPRAZOLAM [Concomitant]
  16. TEMAZEPAM [Concomitant]
     Route: 048
  17. COLACE [Concomitant]

REACTIONS (4)
  - CARDIAC FAILURE CONGESTIVE [None]
  - GENERALISED OEDEMA [None]
  - RIGHT VENTRICULAR FAILURE [None]
  - WEIGHT INCREASED [None]
